FAERS Safety Report 8818864 (Version 1)
Quarter: 2012Q4

REPORT INFORMATION
  Report Type: 
  Country: US (occurrence: US)
  Receive Date: 20121001
  Receipt Date: 20121001
  Transmission Date: 20130627
  Serious: Yes (Other)
  Sender: FDA-Public Use
  Company Number: US-JNJFOC-20120912083

PATIENT
  Age: 66 Year
  Sex: Male
  Weight: 99.79 kg

DRUGS (3)
  1. XARELTO [Suspect]
     Indication: CEREBROVASCULAR ACCIDENT PROPHYLAXIS
     Route: 048
     Dates: start: 2012, end: 2012
  2. XARELTO [Suspect]
     Indication: ATRIAL FIBRILLATION
     Route: 048
     Dates: start: 2012, end: 2012
  3. BENICAR [Concomitant]
     Route: 065

REACTIONS (3)
  - Ejection fraction decreased [Not Recovered/Not Resolved]
  - Myalgia [Unknown]
  - Fatigue [Unknown]
